FAERS Safety Report 9272594 (Version 1)
Quarter: 2013Q2

REPORT INFORMATION
  Report Type: Spontaneous
  Country: US (occurrence: US)
  Receive Date: 20130506
  Receipt Date: 20130506
  Transmission Date: 20140414
  Serious: No
  Sender: FDA-Public Use
  Company Number: US-ASTRAZENECA-2013SE28854

PATIENT
  Age: 69 Year
  Sex: Male
  Weight: 88 kg

DRUGS (8)
  1. SYMBICORT [Suspect]
     Indication: CHRONIC OBSTRUCTIVE PULMONARY DISEASE
     Dosage: 160MCG 2 PUFFS BID
     Route: 055
     Dates: start: 201304, end: 20130422
  2. SYMBICORT [Suspect]
     Indication: PULMONARY CONGESTION
     Dosage: 160MCG 2 PUFFS BID
     Route: 055
     Dates: start: 201304, end: 20130422
  3. SPIRIVA [Suspect]
     Route: 065
     Dates: end: 201304
  4. THYROID [Concomitant]
     Indication: THYROID HORMONE REPLACEMENT THERAPY
     Route: 048
  5. LITHIUM [Concomitant]
     Indication: BIPOLAR I DISORDER
     Route: 048
  6. SOMETHING TO SLOW HEART [Concomitant]
     Indication: ATRIAL FIBRILLATION
     Route: 048
  7. UNKNOWN [Concomitant]
     Indication: BLOOD PRESSURE ABNORMAL
     Route: 048
  8. ASPIRIN [Concomitant]
     Indication: ANTICOAGULANT THERAPY
     Route: 042

REACTIONS (6)
  - Toothache [Unknown]
  - Night sweats [Unknown]
  - Sleep disorder due to a general medical condition [Unknown]
  - Chronic obstructive pulmonary disease [Unknown]
  - Off label use [Unknown]
  - Intentional drug misuse [Unknown]
